FAERS Safety Report 24198372 (Version 2)
Quarter: 2024Q3

REPORT INFORMATION
  Report Type: Spontaneous
  Country: US (occurrence: US)
  Receive Date: 20240812
  Receipt Date: 20240902
  Transmission Date: 20241017
  Serious: No
  Sender: ASTELLAS
  Company Number: US-ASTELLAS-2024US021175

PATIENT
  Age: 61 Year
  Sex: Female

DRUGS (2)
  1. VEOZAH [Interacting]
     Active Substance: FEZOLINETANT
     Indication: Menopausal symptoms
     Dosage: 45 MG, ONCE DAILY
     Route: 065
     Dates: start: 202310
  2. NORCO [Interacting]
     Active Substance: ACETAMINOPHEN\HYDROCODONE BITARTRATE
     Indication: Pain
     Dosage: UNK UNK, AS NEEDED OCCASIONALLY
     Route: 065

REACTIONS (5)
  - Erythema [Unknown]
  - Skin burning sensation [Unknown]
  - Photosensitivity reaction [Unknown]
  - Drug interaction [Unknown]
  - Drug ineffective [Unknown]
